FAERS Safety Report 6521074-8 (Version None)
Quarter: 2009Q4

REPORT INFORMATION
  Report Type: 
  Country: None (occurrence: None)
  Receive Date: 20091229
  Receipt Date: 20091217
  Transmission Date: 20100525
  Serious: Yes (Life-Threatening, Hospitalization, Other)
  Sender: FDA-Public Use
  Company Number: US-ELI_LILLY_AND_COMPANY-US200910002866

PATIENT
  Age: 47 Year
  Sex: Female

DRUGS (2)
  1. ZYPREXA [Suspect]
     Dosage: 5 MG, UNK
     Dates: start: 20070101
  2. FLUOXETINE HYDROCHLORIDE [Suspect]

REACTIONS (10)
  - ANXIETY [None]
  - DEHYDRATION [None]
  - DEPRESSION [None]
  - DRUG INEFFECTIVE [None]
  - ENDOMETRIAL CANCER [None]
  - GLUCOSE TOLERANCE IMPAIRED [None]
  - INCREASED APPETITE [None]
  - INSOMNIA [None]
  - MALNUTRITION [None]
  - WEIGHT INCREASED [None]
